FAERS Safety Report 4264725-3 (Version None)
Quarter: 2004Q1

REPORT INFORMATION
  Report Type: 
  Country: None (occurrence: None)
  Receive Date: 20040102
  Receipt Date: 20031212
  Transmission Date: 20041129
  Serious: Yes (Hospitalization)
  Sender: FDA-Public Use
  Company Number: US_031198974

PATIENT
  Age: 54 Year
  Sex: Male
  Weight: 103 kg

DRUGS (1)
  1. HUMATROPE [Suspect]
     Indication: GROWTH HORMONE DEFICIENCY
     Dosage: 0.41 MG/1 DAY
     Dates: start: 19980814, end: 20031008

REACTIONS (3)
  - FEMUR FRACTURE [None]
  - LOCALISED OSTEOARTHRITIS [None]
  - PAIN IN EXTREMITY [None]
